FAERS Safety Report 9890201 (Version 1)
Quarter: 2014Q1

REPORT INFORMATION
  Report Type: Spontaneous
  Country: US (occurrence: US)
  Receive Date: 20140212
  Receipt Date: 20140212
  Transmission Date: 20141002
  Serious: No
  Sender: FDA-Public Use
  Company Number: US-BIOGENIDEC-2014BI011824

PATIENT
  Sex: Female

DRUGS (5)
  1. TECFIDERA [Suspect]
     Indication: MULTIPLE SCLEROSIS
     Route: 048
     Dates: start: 20140115
  2. ADVIL [Concomitant]
  3. LEVORA [Concomitant]
  4. XANAX [Concomitant]
  5. PREDNISONE [Concomitant]

REACTIONS (5)
  - Abdominal distension [Unknown]
  - Muscle spasms [Unknown]
  - Abdominal discomfort [Unknown]
  - Flushing [Unknown]
  - Nausea [Unknown]
